FAERS Safety Report 8021620-1 (Version None)
Quarter: 2012Q1

REPORT INFORMATION
  Report Type: 
  Country: None (occurrence: None)
  Receive Date: 20120104
  Receipt Date: 20120104
  Transmission Date: 20120608
  Serious: Yes (Hospitalization)
  Sender: FDA-Public Use
  Company Number: None

PATIENT
  Age: 87 Year
  Sex: Female
  Weight: 81 kg

DRUGS (1)
  1. COUMADIN [Suspect]
     Indication: DEEP VEIN THROMBOSIS
     Dosage: 4MG
     Route: 048

REACTIONS (4)
  - FALL [None]
  - SUBDURAL HAEMATOMA [None]
  - HEAD INJURY [None]
  - GASTROINTESTINAL HAEMORRHAGE [None]
